FAERS Safety Report 17420948 (Version 2)
Quarter: 2020Q1

REPORT INFORMATION
  Report Type: Report from Study
  Country: CA (occurrence: CA)
  Receive Date: 20200214
  Receipt Date: 20200313
  Transmission Date: 20200409
  Serious: Yes (Other)
  Sender: FDA-Public Use
  Company Number: CA-GLAXOSMITHKLINE-CA2020022353

PATIENT
  Sex: Male

DRUGS (3)
  1. DESLORATADINE. [Concomitant]
     Active Substance: DESLORATADINE
     Indication: HYPERSENSITIVITY
     Dosage: UNK
     Route: 065
  2. DICLOFENAC [Suspect]
     Active Substance: DICLOFENAC
     Indication: PRODUCT USED FOR UNKNOWN INDICATION
     Dosage: UNK
     Route: 065
  3. ERELZI [Suspect]
     Active Substance: ETANERCEPT-SZZS
     Indication: ANKYLOSING SPONDYLITIS
     Dosage: 50 MG, QW
     Route: 058
     Dates: start: 20200116

REACTIONS (12)
  - Ankylosing spondylitis [Unknown]
  - Joint swelling [Unknown]
  - Drug ineffective [Unknown]
  - Blood urea increased [Unknown]
  - Blood cholesterol increased [Unknown]
  - Back pain [Unknown]
  - Fatigue [Unknown]
  - Pain [Unknown]
  - Discomfort [Unknown]
  - Arthralgia [Unknown]
  - Musculoskeletal stiffness [Unknown]
  - Tenderness [Unknown]
